FAERS Safety Report 7527055-X (Version None)
Quarter: 2011Q2

REPORT INFORMATION
  Report Type: 
  Country: None (occurrence: None)
  Receive Date: 20110606
  Receipt Date: 20100922
  Transmission Date: 20111010
  Serious: Yes (Death)
  Sender: FDA-Public Use
  Company Number: US-ABBOTT-10P-163-0672038-00

PATIENT
  Age: 68 Year
  Sex: Male

DRUGS (8)
  1. THALIDIMIDE [Concomitant]
     Indication: CHEMOTHERAPY
     Dates: start: 20071001
  2. ZEMPLAR [Suspect]
     Indication: RENAL FAILURE
     Dates: start: 20080101, end: 20080101
  3. INSULIN [Concomitant]
     Indication: DIABETES MELLITUS
     Dates: start: 19990101
  4. ZEMPLAR [Suspect]
     Dates: start: 20090601, end: 20100401
  5. COMPAZINE [Concomitant]
     Indication: NAUSEA
     Dates: start: 20071001
  6. ATIVAN [Concomitant]
     Indication: SLEEP DISORDER THERAPY
     Dates: end: 20100601
  7. PREVACID [Concomitant]
     Indication: GASTRIC DISORDER
  8. REVLIMID [Concomitant]
     Indication: CHEMOTHERAPY
     Dates: start: 20071001

REACTIONS (3)
  - DYSPHAGIA [None]
  - ASTHENIA [None]
  - GENERAL PHYSICAL HEALTH DETERIORATION [None]
